FAERS Safety Report 21075465 (Version 1)
Quarter: 2022Q3

REPORT INFORMATION
  Report Type: Spontaneous
  Country: JP (occurrence: None)
  Receive Date: 20220713
  Receipt Date: 20220713
  Transmission Date: 20221027
  Serious: Yes (Other)
  Sender: FDA-Public Use
  Company Number: JP-MICRO LABS LIMITED-ML2022-03202

PATIENT
  Age: 33 Year
  Sex: Female

DRUGS (5)
  1. CLINDAMYCIN [Suspect]
     Active Substance: CLINDAMYCIN
     Indication: Streptococcal infection
  2. CEFAZOLIN [Suspect]
     Active Substance: CEFAZOLIN
  3. TEICOPLANIN [Suspect]
     Active Substance: TEICOPLANIN
     Indication: Staphylococcal infection
     Dosage: DOSE WAS 800 MG/DAY FOR 3 DAYS, FOLLOWED BY 400 MG/DAY EVERY OTHER DAY
  4. TEICOPLANIN [Suspect]
     Active Substance: TEICOPLANIN
     Dosage: DOSE WAS INCREASED TO 400 MG/DAY
  5. TEICOPLANIN [Suspect]
     Active Substance: TEICOPLANIN
     Dosage: DOSE OF TEIC WAS INCREASED TO 800 MG/DAY

REACTIONS (1)
  - Drug eruption [Recovered/Resolved]
